FAERS Safety Report 5450964-2 (Version None)
Quarter: 2007Q3

REPORT INFORMATION
  Report Type: 
  Country: None (occurrence: None)
  Receive Date: 20070911
  Receipt Date: 20070906
  Transmission Date: 20080115
  Serious: Yes (Death, Life-Threatening, Hospitalization, Disabling, Other)
  Sender: FDA-Public Use
  Company Number: WAES 0706KOR00020

PATIENT
  Age: 60 Year
  Sex: Male

DRUGS (9)
  1. CANCIDAS [Suspect]
     Indication: ASPERGILLOSIS
     Dosage: 70 MG/DAILY IV; 50 MG/DAILY IV
     Route: 042
     Dates: start: 20070115, end: 20070115
  2. CANCIDAS [Suspect]
     Indication: ASPERGILLOSIS
     Dosage: 70 MG/DAILY IV; 50 MG/DAILY IV
     Route: 042
     Dates: start: 20070116, end: 20070205
  3. AMIKACIN SULFATE [Concomitant]
  4. CEFTAZIDIME [Concomitant]
  5. CLINDAMYCIN PHOSPHATE [Concomitant]
  6. IMIPENEM [Concomitant]
  7. ITRACONAZOLE [Concomitant]
  8. SULFAMETHOXAZOLE AND TRIMETHOPRIM [Concomitant]
  9. TEICOPLANIN [Concomitant]

REACTIONS (6)
  - ACUTE MYELOID LEUKAEMIA [None]
  - ACUTE RESPIRATORY DISTRESS SYNDROME [None]
  - CONDITION AGGRAVATED [None]
  - PNEUMONIA FUNGAL [None]
  - PULMONARY HAEMORRHAGE [None]
  - SEPTIC SHOCK [None]
